FAERS Safety Report 25319924 (Version 1)
Quarter: 2025Q2

REPORT INFORMATION
  Report Type: Spontaneous
  Country: US (occurrence: US)
  Receive Date: 20250515
  Receipt Date: 20250515
  Transmission Date: 20250717
  Serious: Yes (Other)
  Sender: TEVA
  Company Number: US-TEVA-VS-3329139

PATIENT
  Age: 72 Year
  Sex: Male

DRUGS (2)
  1. CLONIDINE HYDROCHLORIDE [Suspect]
     Active Substance: CLONIDINE HYDROCHLORIDE
     Indication: Labile hypertension
     Route: 062
  2. CLONIDINE HYDROCHLORIDE [Suspect]
     Active Substance: CLONIDINE HYDROCHLORIDE
     Route: 062
     Dates: start: 20250428

REACTIONS (5)
  - Withdrawal hypertension [Recovering/Resolving]
  - Hyperhidrosis [Unknown]
  - Off label use [Unknown]
  - Drug effect less than expected [Unknown]
  - Stress [Unknown]

NARRATIVE: CASE EVENT DATE: 20250428
